FAERS Safety Report 9669363 (Version 1)
Quarter: 2013Q4

REPORT INFORMATION
  Report Type: Report from Study
  Country: US (occurrence: US)
  Receive Date: 20131105
  Receipt Date: 20131105
  Transmission Date: 20140711
  Serious: Yes (Hospitalization)
  Sender: FDA-Public Use
  Company Number: US-ROCHE-1295826

PATIENT
  Age: 66 Year
  Sex: Male

DRUGS (5)
  1. AVASTIN [Suspect]
     Indication: DIABETIC RETINAL OEDEMA
     Route: 050
  2. INSULIN [Concomitant]
     Indication: DIABETES MELLITUS
  3. CRESTOR [Concomitant]
  4. LOSARTAN [Concomitant]
  5. CYMBALTA [Concomitant]
     Indication: DEPRESSION

REACTIONS (4)
  - Intestinal obstruction [Recovered/Resolved]
  - Renal failure [Unknown]
  - Myocardial infarction [Recovered/Resolved]
  - Off label use [Unknown]
